FAERS Safety Report 11815163 (Version 2)
Quarter: 2017Q2

REPORT INFORMATION
  Report Type: Spontaneous
  Country: US (occurrence: US)
  Receive Date: 20151209
  Receipt Date: 20170517
  Transmission Date: 20170829
  Serious: No
  Sender: FDA-Public Use
  Company Number: US-SA-2015SA175395

PATIENT
  Age: 66 Year
  Sex: Male
  Weight: 120.65 kg

DRUGS (6)
  1. SOLOSTAR [Concomitant]
     Active Substance: DEVICE
     Dates: start: 20151024
  2. LANTUS SOLOSTAR [Concomitant]
     Active Substance: INSULIN GLARGINE
  3. SOLOSTAR [Concomitant]
     Active Substance: DEVICE
  4. SOLOSTAR [Concomitant]
     Active Substance: DEVICE
     Dates: start: 20151008
  5. TOUJEO [Suspect]
     Active Substance: INSULIN GLARGINE
     Dosage: DOSE: 50 U IN THE AM AND 25 U IN THE PM
     Route: 065
     Dates: start: 20151008, end: 2016
  6. TOUJEO [Suspect]
     Active Substance: INSULIN GLARGINE
     Dosage: DOSE:75 UNIT(S)
     Route: 065
     Dates: start: 20151024

REACTIONS (6)
  - Dizziness [Recovered/Resolved]
  - Rash generalised [Unknown]
  - Arthralgia [Unknown]
  - Visual impairment [Unknown]
  - Pruritus [Unknown]
  - Drug administration error [Unknown]

NARRATIVE: CASE EVENT DATE: 201510
